FAERS Safety Report 6628393-5 (Version None)
Quarter: 2010Q1

REPORT INFORMATION
  Report Type: 
  Country: None (occurrence: None)
  Receive Date: 20100311
  Receipt Date: 20100301
  Transmission Date: 20100710
  Serious: Yes (Disabling)
  Sender: FDA-Public Use
  Company Number: JP-ROCHE-689443

PATIENT
  Sex: Male
  Weight: 49 kg

DRUGS (9)
  1. CAPECITABINE [Suspect]
     Indication: COLON CANCER
     Route: 048
     Dates: start: 20090708, end: 20090721
  2. CAPECITABINE [Suspect]
     Route: 048
     Dates: start: 20090729, end: 20090811
  3. CAPECITABINE [Suspect]
     Route: 048
     Dates: start: 20090819, end: 20090827
  4. MICARDIS [Suspect]
     Indication: HYPERTENSION
     Route: 048
  5. MAGLAX [Concomitant]
     Route: 048
  6. FERROMIA [Concomitant]
     Dosage: FORM: UNCERTAINTY
     Route: 048
  7. TRIAZOLAM [Concomitant]
     Route: 048
  8. PURSENNID [Concomitant]
     Route: 048
     Dates: start: 20090728, end: 20090827
  9. PYRIDOXAL PHOSPHATE [Concomitant]
     Route: 048
     Dates: start: 20090708, end: 20090827

REACTIONS (1)
  - BRAIN CONTUSION [None]
